FAERS Safety Report 5031415-9 (Version None)
Quarter: 2006Q2

REPORT INFORMATION
  Report Type: 
  Country: None (occurrence: None)
  Receive Date: 20060621
  Receipt Date: 20060609
  Transmission Date: 20061013
  Serious: Yes (Other)
  Sender: FDA-Public Use
  Company Number: PHNU2006DE02225

PATIENT
  Sex: Male

DRUGS (2)
  1. INSULIN [Concomitant]
     Indication: DIABETES MELLITUS INSULIN-DEPENDENT
     Route: 065
  2. ZOMETA [Suspect]
     Indication: MULTIPLE MYELOMA
     Dosage: 1 DF, QMO
     Route: 042

REACTIONS (2)
  - OSTEONECROSIS [None]
  - TOOTH EXTRACTION [None]
